FAERS Safety Report 10038045 (Version 1)
Quarter: 2014Q1

REPORT INFORMATION
  Report Type: Spontaneous
  Country: US (occurrence: None)
  Receive Date: 20140325
  Receipt Date: 20140325
  Transmission Date: 20141002
  Serious: Yes (Hospitalization)
  Sender: FDA-Public Use
  Company Number: None

PATIENT
  Age: 63 Year
  Sex: Female
  Weight: 68.2 kg

DRUGS (1)
  1. ACLIDINIUM BROMIDE [Suspect]
     Indication: CHRONIC OBSTRUCTIVE PULMONARY DISEASE
     Route: 055
     Dates: start: 20131114, end: 20131203

REACTIONS (5)
  - Throat tightness [None]
  - Headache [None]
  - Dyspnoea [None]
  - Condition aggravated [None]
  - Gastrooesophageal reflux disease [None]
